FAERS Safety Report 6429498-4 (Version None)
Quarter: 2009Q4

REPORT INFORMATION
  Report Type: 
  Country: None (occurrence: None)
  Receive Date: 20091105
  Receipt Date: 20090729
  Transmission Date: 20100525
  Serious: No
  Sender: FDA-Public Use
  Company Number: US-ABBOTT-09P-163-0588847-00

PATIENT
  Sex: Male

DRUGS (2)
  1. KALETRA [Suspect]
     Indication: HIV INFECTION
     Dosage: TWO 200/50MG IN AM, TWO 200/50MG IN PM.
  2. TRUVADA [Concomitant]
     Indication: HIV INFECTION
     Dosage: ONE TABLET IN AM WITH THE KALETRA

REACTIONS (2)
  - DRUG DOSE OMISSION [None]
  - INAPPROPRIATE SCHEDULE OF DRUG ADMINISTRATION [None]
